FAERS Safety Report 24406090 (Version 1)
Quarter: 2024Q4

REPORT INFORMATION
  Report Type: Report from Study
  Country: US (occurrence: US)
  Receive Date: 20241007
  Receipt Date: 20241007
  Transmission Date: 20250115
  Serious: Yes (Other)
  Sender: ABBVIE
  Company Number: US-ABBVIE-5948146

PATIENT
  Sex: Female

DRUGS (1)
  1. LO LOESTRIN FE [Suspect]
     Active Substance: ETHINYL ESTRADIOL\NORETHINDRONE ACETATE
     Indication: Premenstrual dysphoric disorder
     Route: 048
     Dates: start: 202405, end: 202407

REACTIONS (4)
  - Suicidal ideation [Unknown]
  - Off label use [Not Recovered/Not Resolved]
  - Depression [Unknown]
  - Impaired work ability [Unknown]

NARRATIVE: CASE EVENT DATE: 20240101
